FAERS Safety Report 12873039 (Version 1)
Quarter: 2016Q4

REPORT INFORMATION
  Report Type: Spontaneous
  Country: US (occurrence: US)
  Receive Date: 20161021
  Receipt Date: 20161021
  Transmission Date: 20170207
  Serious: No
  Sender: FDA-Public Use
  Company Number: US-009507513-1610USA008383

PATIENT
  Age: 25 Year
  Sex: Female
  Weight: 72.56 kg

DRUGS (2)
  1. SERTRALINE HYDROCHLORIDE. [Concomitant]
     Active Substance: SERTRALINE HYDROCHLORIDE
     Indication: DEPRESSION
     Dosage: UNK
  2. NEXPLANON [Suspect]
     Active Substance: ETONOGESTREL
     Indication: CONTRACEPTION
     Dosage: 3 YEAR IMPLANT
     Route: 059
     Dates: start: 20160329

REACTIONS (3)
  - Amenorrhoea [Recovered/Resolved]
  - Menorrhagia [Unknown]
  - Metrorrhagia [Recovered/Resolved]

NARRATIVE: CASE EVENT DATE: 20160329
